FAERS Safety Report 23787554 (Version 2)
Quarter: 2024Q2

REPORT INFORMATION
  Report Type: Report from Study
  Country: CN (occurrence: CN)
  Receive Date: 20240426
  Receipt Date: 20240430
  Transmission Date: 20240716
  Serious: Yes (Other)
  Sender: FDA-Public Use
  Company Number: CN-009507513-2404CHN010001

PATIENT
  Age: 10 Year
  Sex: Male

DRUGS (8)
  1. TEMOZOLOMIDE [Suspect]
     Active Substance: TEMOZOLOMIDE
     Indication: Desmoplastic small round cell tumour
     Dosage: UNK, Q3W FOR 6 CYCLES
     Route: 048
  2. IFOSFAMIDE [Suspect]
     Active Substance: IFOSFAMIDE
     Indication: Desmoplastic small round cell tumour
     Dosage: UNK, Q3W FOR 4 CYCLES
  3. DOXORUBICIN [Suspect]
     Active Substance: DOXORUBICIN
     Indication: Desmoplastic small round cell tumour
     Dosage: UNK, Q3W FOR 4 CYCLES
  4. ETOPOSIDE [Suspect]
     Active Substance: ETOPOSIDE
     Indication: Desmoplastic small round cell tumour
     Dosage: UNK, Q3W FOR 4 CYCLES
  5. VINCRISTINE [Suspect]
     Active Substance: VINCRISTINE
     Indication: Desmoplastic small round cell tumour
     Dosage: UNK, Q3WFOR 4 CYCLES
  6. VINCRISTINE [Suspect]
     Active Substance: VINCRISTINE
     Dosage: UNK, Q3WFOR 6 CYCLES
  7. IRINOTECAN [Suspect]
     Active Substance: IRINOTECAN
     Indication: Desmoplastic small round cell tumour
     Dosage: UNK, Q3W FOR 6 CYCLES
  8. CATEQUENTINIB [Suspect]
     Active Substance: CATEQUENTINIB
     Indication: Desmoplastic small round cell tumour
     Dosage: 8 MG, ONCE DAILY FOR 2 WEEKS ON AND ONE WEEK OFF

REACTIONS (7)
  - Febrile neutropenia [Unknown]
  - Leukopenia [Unknown]
  - Thrombocytopenia [Unknown]
  - Anaemia [Unknown]
  - Decreased appetite [Unknown]
  - Vomiting [Unknown]
  - Off label use [Unknown]
